FAERS Safety Report 9014425 (Version 2)
Quarter: 2013Q1

REPORT INFORMATION
  Report Type: Spontaneous
  Country: US (occurrence: US)
  Receive Date: 20130115
  Receipt Date: 20130129
  Transmission Date: 20140127
  Serious: Yes (Hospitalization, Other)
  Sender: FDA-Public Use
  Company Number: US-AMGEN-USASP2013001837

PATIENT
  Age: 66 Year
  Sex: Male

DRUGS (3)
  1. ENBREL [Suspect]
     Indication: PSORIATIC ARTHROPATHY
     Dosage: 25 MG, 2 TIMES/WK
     Dates: start: 1998
  2. ENBREL [Suspect]
     Indication: PSORIASIS
  3. ENBREL [Suspect]
     Indication: RHEUMATOID ARTHRITIS

REACTIONS (12)
  - Rotator cuff syndrome [Recovered/Resolved]
  - Loss of consciousness [Recovered/Resolved]
  - Cardiac flutter [Recovered/Resolved]
  - Arrhythmia [Not Recovered/Not Resolved]
  - Cardiac disorder [Unknown]
  - Conduction disorder [Unknown]
  - Atrial fibrillation [Recovered/Resolved]
  - Device malfunction [Recovered/Resolved]
  - Arthritis [Recovered/Resolved]
  - Migraine [Not Recovered/Not Resolved]
  - Arthropathy [Not Recovered/Not Resolved]
  - Contusion [Not Recovered/Not Resolved]
